FAERS Safety Report 9658046 (Version 3)
Quarter: 2014Q2

REPORT INFORMATION
  Report Type: Spontaneous
  Country: FR (occurrence: None)
  Receive Date: 20131029
  Receipt Date: 20140506
  Transmission Date: 20141212
  Serious: Yes (Other)
  Sender: FDA-Public Use
  Company Number: AUR-APL-2013-08773

PATIENT
  Age: 73 Year
  Sex: Female
  Weight: 38 kg

DRUGS (6)
  1. RAMIPRIL [Suspect]
     Indication: ACUTE CORONARY SYNDROME
     Route: 048
     Dates: start: 201304
  2. TAHOR [Suspect]
     Indication: ACUTE CORONARY SYNDROME
     Dates: start: 201304, end: 201310
  3. KARDEGIC (ACETYLSALICYLATE LYSINE) [Concomitant]
     Indication: PRODUCT USED FOR UNKNOWN INDICATION
  4. MOPRAL (OMEPRAZOLE) [Concomitant]
     Indication: PRODUCT USED FOR UNKNOWN INDICATION
  5. BRILIQUE [Suspect]
     Indication: PRODUCT USED FOR UNKNOWN INDICATION
     Dosage: 180 MG (90 MG, 2 IN 1 D), ORAL
     Route: 048
     Dates: start: 201304
  6. CARDENSILE (BISOPROLOL FUMARATE) [Concomitant]

REACTIONS (8)
  - Diarrhoea [None]
  - Weight decreased [None]
  - Blood pressure systolic increased [None]
  - Peripheral embolism [None]
  - Platelet count decreased [None]
  - Arterial disorder [None]
  - Blood creatinine increased [None]
  - Peripheral embolism [None]
